FAERS Safety Report 18056274 (Version 4)
Quarter: 2021Q2

REPORT INFORMATION
  Report Type: Report from Study
  Country: US (occurrence: US)
  Receive Date: 20200722
  Receipt Date: 20210415
  Transmission Date: 20210717
  Serious: Yes (Other)
  Sender: FDA-Public Use
  Company Number: US-ASTRAZENECA-2020SE90462

PATIENT
  Age: 888 Month
  Sex: Female
  Weight: 65.8 kg

DRUGS (12)
  1. TRILOGY [Concomitant]
     Indication: CHRONIC OBSTRUCTIVE PULMONARY DISEASE
     Dosage: DAILY
     Route: 055
  2. PROAIR HFA [Concomitant]
     Active Substance: ALBUTEROL SULFATE
     Indication: PAIN
     Dosage: AS REQUIRED
     Route: 055
  3. CBD OIL [Concomitant]
     Active Substance: CANNABIDIOL\HERBALS
     Indication: SLEEP DISORDER
     Dosage: AS REQUIRED
  4. AMLODIPINE [Concomitant]
     Active Substance: AMLODIPINE BESYLATE
     Indication: BLOOD PRESSURE MEASUREMENT
     Route: 065
  5. NEXIUM [Suspect]
     Active Substance: ESOMEPRAZOLE MAGNESIUM
     Indication: GASTROOESOPHAGEAL REFLUX DISEASE
     Dosage: 40MEQ/L DAILY
     Route: 048
  6. NEXIUM [Suspect]
     Active Substance: ESOMEPRAZOLE MAGNESIUM
     Indication: HIATUS HERNIA
     Dosage: 40MEQ/L DAILY
     Route: 048
  7. NEXIUM 24HR [Suspect]
     Active Substance: ESOMEPRAZOLE MAGNESIUM
     Route: 048
  8. TRILOGY [Concomitant]
     Indication: ASTHMA
     Dosage: DAILY
     Route: 055
  9. FASENRA [Suspect]
     Active Substance: BENRALIZUMAB
     Indication: CHRONIC OBSTRUCTIVE PULMONARY DISEASE
     Route: 058
     Dates: start: 20200310
  10. TYLENOL [Concomitant]
     Active Substance: ACETAMINOPHEN
     Indication: ARTHRALGIA
     Dosage: AS REQUIRED
  11. FASENRA [Suspect]
     Active Substance: BENRALIZUMAB
     Indication: ASTHMA
     Route: 058
     Dates: start: 20200310
  12. ZYRTEC [Concomitant]
     Active Substance: CETIRIZINE HYDROCHLORIDE
     Indication: HYPERSENSITIVITY
     Route: 065

REACTIONS (15)
  - Haemoglobin decreased [Recovered/Resolved]
  - Cataract [Recovered/Resolved]
  - Constipation [Unknown]
  - Product use issue [Not Recovered/Not Resolved]
  - Device leakage [Unknown]
  - Arthralgia [Unknown]
  - Sleep disorder [Unknown]
  - Asthma [Unknown]
  - Psychomotor hyperactivity [Unknown]
  - Diarrhoea [Unknown]
  - Chronic obstructive pulmonary disease [Unknown]
  - Product dose omission issue [Not Recovered/Not Resolved]
  - Photophobia [Not Recovered/Not Resolved]
  - Pneumonia [Recovered/Resolved]
  - Device operational issue [Unknown]

NARRATIVE: CASE EVENT DATE: 201812
